FAERS Safety Report 24666285 (Version 1)
Quarter: 2024Q4

REPORT INFORMATION
  Report Type: Spontaneous
  Country: US (occurrence: US)
  Receive Date: 20241126
  Receipt Date: 20241126
  Transmission Date: 20250115
  Serious: Yes (Other)
  Sender: ASSERTIO THERAPEUTICS
  Company Number: US-ASSERTIO THERAPEUTICS, INC.-US-2024AST000286

PATIENT
  Age: 29 Year
  Sex: Female

DRUGS (2)
  1. INDOCIN [Suspect]
     Active Substance: INDOMETHACIN
     Indication: Psoriatic arthropathy
     Dosage: UNK
     Route: 065
  2. RINVOQ [Suspect]
     Active Substance: UPADACITINIB
     Indication: Psoriatic arthropathy
     Dosage: UNK
     Route: 065

REACTIONS (1)
  - Perforated ulcer [Unknown]
